FAERS Safety Report 25670457 (Version 1)
Quarter: 2025Q3

REPORT INFORMATION
  Report Type: Spontaneous
  Country: EU (occurrence: EU)
  Receive Date: 20250812
  Receipt Date: 20250812
  Transmission Date: 20251021
  Serious: Yes (Life-Threatening, Hospitalization, Other)
  Sender: AUROBINDO
  Company Number: EU-BRISTOL-MYERS SQUIBB COMPANY-2025-101651

PATIENT
  Age: 69 Year
  Sex: Female
  Weight: 100 kg

DRUGS (39)
  1. CARBOPLATIN [Suspect]
     Active Substance: CARBOPLATIN
     Indication: Non-small cell lung cancer
     Route: 042
     Dates: start: 20250703
  2. CARBOPLATIN [Suspect]
     Active Substance: CARBOPLATIN
     Route: 042
     Dates: start: 20250724
  3. PACLITAXEL [Suspect]
     Active Substance: PACLITAXEL
     Indication: Non-small cell lung cancer
     Route: 042
     Dates: start: 20250703
  4. PACLITAXEL [Suspect]
     Active Substance: PACLITAXEL
     Route: 042
     Dates: start: 20250724
  5. NIVOLUMAB [Suspect]
     Active Substance: NIVOLUMAB
     Indication: Non-small cell lung cancer
     Dosage: 21 DAYS/CYCLE FOR 3 CYCLES
     Route: 042
     Dates: start: 20250703
  6. ALLOPURINOL [Concomitant]
     Active Substance: ALLOPURINOL
     Indication: Prophylaxis
     Dosage: DAILY
     Route: 048
  7. ALLOPURINOL [Concomitant]
     Active Substance: ALLOPURINOL
     Indication: Supportive care
  8. AMLODIPINE BESYLATE [Concomitant]
     Active Substance: AMLODIPINE BESYLATE
     Indication: Prophylaxis
     Dosage: DAILY
     Route: 048
  9. AMLODIPINE BESYLATE [Concomitant]
     Active Substance: AMLODIPINE BESYLATE
     Indication: Supportive care
  10. ATORVASTATIN [Concomitant]
     Active Substance: ATORVASTATIN
     Indication: Prophylaxis
     Dosage: DAILY
     Route: 048
  11. ATORVASTATIN [Concomitant]
     Active Substance: ATORVASTATIN
     Indication: Supportive care
  12. CANDESARTAN [Concomitant]
     Active Substance: CANDESARTAN
     Indication: Prophylaxis
     Route: 048
  13. CANDESARTAN [Concomitant]
     Active Substance: CANDESARTAN
     Indication: Supportive care
  14. APIXABAN [Concomitant]
     Active Substance: APIXABAN
     Indication: Prophylaxis
     Route: 048
  15. APIXABAN [Concomitant]
     Active Substance: APIXABAN
     Indication: Supportive care
  16. HYDROCHLOROTHIAZIDE [Concomitant]
     Active Substance: HYDROCHLOROTHIAZIDE
     Indication: Prophylaxis
     Dosage: DAILY
     Route: 048
  17. HYDROCHLOROTHIAZIDE [Concomitant]
     Active Substance: HYDROCHLOROTHIAZIDE
     Indication: Supportive care
  18. LEVOTHYROXINE [Concomitant]
     Active Substance: LEVOTHYROXINE
     Indication: Prophylaxis
     Dosage: DAILY
     Route: 048
  19. LEVOTHYROXINE [Concomitant]
     Active Substance: LEVOTHYROXINE
     Indication: Supportive care
  20. METOPROLOL [Concomitant]
     Active Substance: METOPROLOL
     Indication: Prophylaxis
     Route: 048
  21. METOPROLOL [Concomitant]
     Active Substance: METOPROLOL
     Indication: Supportive care
  22. MOXONIDINE [Concomitant]
     Active Substance: MOXONIDINE
     Indication: Prophylaxis
     Dosage: DAILY
     Route: 048
  23. MOXONIDINE [Concomitant]
     Active Substance: MOXONIDINE
     Indication: Supportive care
  24. METAMIZOL [Concomitant]
     Active Substance: METAMIZOLE SODIUM
     Indication: Prophylaxis
     Route: 048
  25. METAMIZOL [Concomitant]
     Active Substance: METAMIZOLE SODIUM
     Indication: Supportive care
  26. TIOTROPIUM BROMIDE [Concomitant]
     Active Substance: TIOTROPIUM BROMIDE
     Indication: Prophylaxis
     Dosage: DAILY
  27. TIOTROPIUM BROMIDE [Concomitant]
     Active Substance: TIOTROPIUM BROMIDE
     Indication: Supportive care
  28. MAGALDRATE [Concomitant]
     Active Substance: MAGALDRATE
     Indication: Prophylaxis
     Route: 048
  29. MAGALDRATE [Concomitant]
     Active Substance: MAGALDRATE
     Indication: Supportive care
  30. PANTOPRAZOLE SODIUM [Concomitant]
     Active Substance: PANTOPRAZOLE SODIUM
     Indication: Prophylaxis
     Route: 048
  31. PANTOPRAZOLE SODIUM [Concomitant]
     Active Substance: PANTOPRAZOLE SODIUM
     Indication: Supportive care
  32. BROTIZOLAM [Concomitant]
     Active Substance: BROTIZOLAM
     Indication: Prophylaxis
     Route: 048
     Dates: start: 20250715
  33. BROTIZOLAM [Concomitant]
     Active Substance: BROTIZOLAM
     Indication: Supportive care
  34. ONDANSETRON [Concomitant]
     Active Substance: ONDANSETRON
     Indication: Prophylaxis
     Route: 048
     Dates: start: 20250715
  35. ONDANSETRON [Concomitant]
     Active Substance: ONDANSETRON
     Indication: Supportive care
  36. QUETIAPINE [Concomitant]
     Active Substance: QUETIAPINE
     Indication: Prophylaxis
     Route: 048
     Dates: start: 20250715
  37. QUETIAPINE [Concomitant]
     Active Substance: QUETIAPINE
     Indication: Supportive care
  38. URAPIDIL [Concomitant]
     Active Substance: URAPIDIL
     Indication: Prophylaxis
     Route: 048
     Dates: start: 20250715
  39. URAPIDIL [Concomitant]
     Active Substance: URAPIDIL
     Indication: Supportive care

REACTIONS (4)
  - Escherichia sepsis [Recovered/Resolved]
  - Febrile neutropenia [Not Recovered/Not Resolved]
  - Urosepsis [Unknown]
  - Urinary tract infection [Unknown]

NARRATIVE: CASE EVENT DATE: 20250715
